FAERS Safety Report 19465310 (Version 1)
Quarter: 2021Q2

REPORT INFORMATION
  Report Type: Report from Study
  Country: TW (occurrence: TW)
  Receive Date: 20210624
  Receipt Date: 20210624
  Transmission Date: 20210717
  Serious: Yes (Hospitalization, Other)
  Sender: FDA-Public Use
  Company Number: TW-GLAXOSMITHKLINE-TW2021APC101552

PATIENT

DRUGS (1)
  1. MEPOLIZUMAB [Suspect]
     Active Substance: MEPOLIZUMAB
     Indication: PRODUCT USED FOR UNKNOWN INDICATION
     Dosage: UNK,EVERY 28 DAYS

REACTIONS (4)
  - Product dose omission issue [Unknown]
  - Asthma [Unknown]
  - Skin discolouration [Unknown]
  - Social problem [Unknown]

NARRATIVE: CASE EVENT DATE: 20210610
